FAERS Safety Report 21328225 (Version 1)
Quarter: 2022Q3

REPORT INFORMATION
  Report Type: Report from Study
  Country: CO (occurrence: CO)
  Receive Date: 20220913
  Receipt Date: 20220913
  Transmission Date: 20221026
  Serious: Yes (Hospitalization, Other)
  Sender: FDA-Public Use
  Company Number: CO-ABBVIE-22K-036-4511318-00

PATIENT
  Sex: Female
  Weight: 70 kg

DRUGS (1)
  1. HUMIRA [Suspect]
     Active Substance: ADALIMUMAB
     Indication: Hidradenitis
     Route: 058
     Dates: start: 20210914, end: 20220803

REACTIONS (11)
  - Cataract [Recovering/Resolving]
  - Immune system disorder [Not Recovered/Not Resolved]
  - Pneumonia [Not Recovered/Not Resolved]
  - Tuberculosis [Unknown]
  - Ocular discomfort [Recovering/Resolving]
  - Skin lesion [Recovering/Resolving]
  - Vaginal abscess [Recovering/Resolving]
  - Anxiety [Recovering/Resolving]
  - Acne [Unknown]
  - Immunodeficiency [Unknown]
  - Laboratory test abnormal [Not Recovered/Not Resolved]

NARRATIVE: CASE EVENT DATE: 20220101
